FAERS Safety Report 4791088-7 (Version None)
Quarter: 2005Q4

REPORT INFORMATION
  Report Type: 
  Country: None (occurrence: None)
  Receive Date: 20051007
  Receipt Date: 20050926
  Transmission Date: 20060501
  Serious: Yes (Hospitalization)
  Sender: FDA-Public Use
  Company Number: PHRM2005FR02548

PATIENT
  Age: 79 Year
  Sex: Male
  Weight: 80 kg

DRUGS (6)
  1. VOLTAREN [Suspect]
     Indication: TENDONITIS
     Dosage: 2 DF/DAY
     Route: 048
     Dates: start: 20050409, end: 20050419
  2. LAMALINE [Suspect]
     Indication: PAIN
     Dosage: UNK, PRN
     Route: 048
  3. INDAPAMIDE [Suspect]
     Indication: ESSENTIAL HYPERTENSION
     Dosage: 1 DF, QD
     Route: 048
  4. AMAREL [Suspect]
     Indication: DIABETES MELLITUS
     Dosage: 1 DF, QD
     Route: 048
  5. METFORMIN [Suspect]
     Indication: DIABETES MELLITUS
     Dosage: 2 DF/DAY
     Route: 048
  6. KARDEGIC [Suspect]
     Dosage: 160 MG, QD
     Route: 048

REACTIONS (3)
  - ECCHYMOSIS [None]
  - IDIOPATHIC THROMBOCYTOPENIC PURPURA [None]
  - PLATELET COUNT DECREASED [None]
